FAERS Safety Report 21264697 (Version 2)
Quarter: 2022Q4

REPORT INFORMATION
  Report Type: Spontaneous
  Country: US (occurrence: US)
  Receive Date: 20220829
  Receipt Date: 20221005
  Transmission Date: 20230113
  Serious: Yes (Other)
  Sender: FDA-Public Use
  Company Number: US-TAKEDA-2022TUS059808

PATIENT
  Sex: Female

DRUGS (1)
  1. ENTYVIO [Suspect]
     Active Substance: VEDOLIZUMAB
     Indication: Crohn^s disease
     Dosage: UNK
     Route: 042
     Dates: start: 2022

REACTIONS (8)
  - Crohn^s disease [Unknown]
  - Weight increased [Unknown]
  - Asthenia [Unknown]
  - Rash [Unknown]
  - Illness [Unknown]
  - Lethargy [Unknown]
  - Gastrointestinal pain [Unknown]
  - Poor venous access [Unknown]
